FAERS Safety Report 9170931 (Version 1)
Quarter: 2013Q1

REPORT INFORMATION
  Report Type: Spontaneous
  Country: GB (occurrence: None)
  Receive Date: 20130312
  Receipt Date: 20130312
  Transmission Date: 20140127
  Serious: Yes (Hospitalization)
  Sender: FDA-Public Use
  Company Number: 2013P1002843

PATIENT
  Age: 49 Year
  Sex: Female

DRUGS (1)
  1. HYDROCORTISONE [Suspect]
     Indication: PITUITARY TUMOUR BENIGN

REACTIONS (3)
  - Acute focal bacterial nephritis [None]
  - Hypotension [None]
  - Escherichia test positive [None]
